FAERS Safety Report 9640419 (Version 1)
Quarter: 2013Q4

REPORT INFORMATION
  Report Type: Spontaneous
  Country: GB (occurrence: GB)
  Receive Date: 20131023
  Receipt Date: 20131023
  Transmission Date: 20140711
  Serious: Yes (Other)
  Sender: FDA-Public Use
  Company Number: PHHY2010GB095131

PATIENT
  Sex: Male

DRUGS (4)
  1. DESFERAL [Suspect]
     Indication: THALASSAEMIA BETA
     Dosage: 4 IU, PER WEEK
     Route: 058
  2. VITAMIIN C [Concomitant]
     Indication: CHELATION THERAPY
     Dosage: 80 MG, QD
     Route: 048
  3. ABIDEC [Concomitant]
     Indication: VITAMIN SUPPLEMENTATION
     Dosage: 0.6 ML, QD
     Route: 048
  4. SOLVAZINC [Concomitant]
     Dosage: 1 DF, QD
     Route: 048

REACTIONS (2)
  - Retinal dystrophy [Unknown]
  - Eye disorder [Unknown]
